FAERS Safety Report 4799887-2 (Version None)
Quarter: 2005Q4

REPORT INFORMATION
  Report Type: 
  Country: None (occurrence: None)
  Receive Date: 20051013
  Receipt Date: 20051005
  Transmission Date: 20060501
  Serious: Yes (Life-Threatening, Other)
  Sender: FDA-Public Use
  Company Number: HQWYE865006OCT05

PATIENT
  Age: 30 Year
  Sex: Female

DRUGS (3)
  1. ETODOLAC [Suspect]
     Indication: UPPER RESPIRATORY TRACT INFLAMMATION
     Dosage: 400 MG 1X PER 1 DAY ORAL
     Route: 048
     Dates: start: 20050209, end: 20050209
  2. CODEINE PHOSPHATE (CODEINE PHOSPHATE,) [Suspect]
     Indication: UPPER RESPIRATORY TRACT INFECTION
     Dosage: 60 MG 1X PER 1 DAY ORAL
     Route: 048
     Dates: start: 20050209, end: 20050209
  3. GATIFLOXACIN [Suspect]
     Indication: UPPER RESPIRATORY TRACT INFLAMMATION
     Dosage: 400 MG 1X PER 1 DAY ORAL
     Route: 048
     Dates: start: 20050209, end: 20050209

REACTIONS (2)
  - ANAPHYLACTIC SHOCK [None]
  - DYSAESTHESIA [None]
